FAERS Safety Report 10449007 (Version 2)
Quarter: 2014Q3

REPORT INFORMATION
  Report Type: Report from Study
  Country: BE (occurrence: BE)
  Receive Date: 20140912
  Receipt Date: 20140912
  Transmission Date: 20150326
  Serious: Yes (Hospitalization)
  Sender: FDA-Public Use
  Company Number: BE-ROCHE-1446854

PATIENT
  Age: 54 Year
  Sex: Female

DRUGS (4)
  1. ZIRCONIUM-89 [Suspect]
     Active Substance: ZIRCONIUM
     Indication: HER-2 POSITIVE BREAST CANCER
     Route: 065
     Dates: start: 20130218
  2. KEPPRA [Concomitant]
     Active Substance: LEVETIRACETAM
     Indication: CONVULSION
     Dosage: 1.5 TABLET A DAY
     Route: 048
     Dates: start: 201210
  3. TRASTUZUMAB [Suspect]
     Active Substance: TRASTUZUMAB
     Indication: HER-2 POSITIVE BREAST CANCER
     Route: 065
     Dates: start: 20130218
  4. TRASTUZUMAB EMTANSINE [Suspect]
     Active Substance: ADO-TRASTUZUMAB EMTANSINE
     Indication: HER-2 POSITIVE BREAST CANCER
     Dosage: DATE OF LAST DOSE PRIOR TO SAE- 05/AUG/2014- CYCLE 26
     Route: 065
     Dates: start: 20130226

REACTIONS (2)
  - Convulsion [Recovered/Resolved]
  - Cognitive disorder [Recovered/Resolved]

NARRATIVE: CASE EVENT DATE: 20140805
